FAERS Safety Report 5367494-9 (Version None)
Quarter: 2007Q2

REPORT INFORMATION
  Report Type: 
  Country: None (occurrence: None)
  Receive Date: 20070622
  Receipt Date: 20060927
  Transmission Date: 20071010
  Serious: No
  Sender: FDA-Public Use
  Company Number: US-ASTRAZENECA-2006UW18886

PATIENT
  Age: 77 Year
  Sex: Male
  Weight: 72.6 kg

DRUGS (14)
  1. PULMICORT [Suspect]
     Indication: ASTHMA
     Route: 055
     Dates: start: 20060824
  2. ASMANEX TWISTHALER [Suspect]
  3. ALLEGRA [Concomitant]
  4. BUSPAR [Concomitant]
  5. EVISTA [Concomitant]
  6. LESCOL XL [Concomitant]
  7. LOTREL [Concomitant]
  8. PROTONIX [Concomitant]
  9. PROVIGIL [Concomitant]
  10. TOPROL-XL [Concomitant]
     Route: 048
  11. COUMADIN [Concomitant]
  12. ZETIA [Concomitant]
  13. ATROVENT HFA [Concomitant]
  14. FLONASE [Concomitant]

REACTIONS (1)
  - WHEEZING [None]
